FAERS Safety Report 5799931-X (Version None)
Quarter: 2008Q3

REPORT INFORMATION
  Report Type: 
  Country: None (occurrence: None)
  Receive Date: 20080701
  Receipt Date: 20080616
  Transmission Date: 20090109
  Serious: Yes (Hospitalization)
  Sender: FDA-Public Use
  Company Number: 2008BI015536

PATIENT
  Age: 49 Year
  Sex: Female

DRUGS (4)
  1. AVONEX [Suspect]
     Indication: DRUG USE FOR UNKNOWN INDICATION
  2. FLEXERIL [Concomitant]
  3. IBUPROFEN [Concomitant]
  4. ATIVAN [Concomitant]

REACTIONS (8)
  - ABASIA [None]
  - ATAXIA [None]
  - BALANCE DISORDER [None]
  - CEREBELLAR SYNDROME [None]
  - MULTIPLE SCLEROSIS [None]
  - NUCLEAR MAGNETIC RESONANCE IMAGING ABNORMAL [None]
  - SENSORY DISTURBANCE [None]
  - TREMOR [None]
